FAERS Safety Report 4307136-4 (Version None)
Quarter: 2004Q1

REPORT INFORMATION
  Report Type: 
  Country: None (occurrence: None)
  Receive Date: 20040225
  Receipt Date: 20040211
  Transmission Date: 20041129
  Serious: Yes (Life-Threatening)
  Sender: FDA-Public Use
  Company Number: BE-SHR-04-021158

PATIENT
  Age: 65 Year
  Sex: Male

DRUGS (3)
  1. FLUDARA [Suspect]
     Indication: LYMPHOMA
     Dosage: 50 MG, CYCLE X 5D, INTRAVENOUS; 5 MG, CYCLE X 5D, INTRAVENOUS
     Route: 042
     Dates: start: 20031205, end: 20031209
  2. FLUDARA [Suspect]
     Indication: LYMPHOMA
     Dosage: 50 MG, CYCLE X 5D, INTRAVENOUS; 5 MG, CYCLE X 5D, INTRAVENOUS
     Route: 042
     Dates: start: 20040105, end: 20040109
  3. LITICAN(ALIZAPRIDE) [Concomitant]

REACTIONS (7)
  - ABDOMINAL PAIN UPPER [None]
  - ASTHENIA [None]
  - BLOOD LACTATE DEHYDROGENASE INCREASED [None]
  - COOMBS DIRECT TEST POSITIVE [None]
  - COOMBS INDIRECT TEST POSITIVE [None]
  - HAEMOGLOBIN DECREASED [None]
  - HAPTOGLOBIN DECREASED [None]
